FAERS Safety Report 25957689 (Version 1)
Quarter: 2025Q4

REPORT INFORMATION
  Report Type: Spontaneous
  Country: US (occurrence: US)
  Receive Date: 20251024
  Receipt Date: 20251024
  Transmission Date: 20260117
  Serious: No
  Sender: PFIZER
  Company Number: US-PFIZER INC-202500208907

PATIENT
  Age: 16 Year
  Sex: Female

DRUGS (8)
  1. XELJANZ [Suspect]
     Active Substance: TOFACITINIB CITRATE
     Indication: Juvenile idiopathic arthritis
     Dosage: 5 MG, 2X/DAY
     Dates: start: 2017
  2. IBUPROFEN [Concomitant]
     Active Substance: IBUPROFEN
     Dosage: UNK
  3. SUMATRIPTAN SUCCINATE [Concomitant]
     Active Substance: SUMATRIPTAN SUCCINATE
     Dosage: UNK
  4. FOLIC ACID [Concomitant]
     Active Substance: FOLIC ACID
     Dosage: UNK
  5. ONDANSETRON HYDROCHLORIDE [Concomitant]
     Active Substance: ONDANSETRON HYDROCHLORIDE
     Dosage: UNK
  6. ONDANSETRON ODT [ONDANSETRON] [Concomitant]
     Dosage: UNK (RAPDIS)
  7. KYLEENA [Concomitant]
     Active Substance: LEVONORGESTREL
     Dosage: UNK, 17.5 MCG/24 IUD
  8. METHOTREXATE [Concomitant]
     Active Substance: METHOTREXATE
     Dosage: UNK (VIAL)

REACTIONS (2)
  - Cough [Not Recovered/Not Resolved]
  - Pulmonary pain [Not Recovered/Not Resolved]

NARRATIVE: CASE EVENT DATE: 20251017
